FAERS Safety Report 9913277 (Version 2)
Quarter: 2014Q2

REPORT INFORMATION
  Report Type: Spontaneous
  Country: IT (occurrence: IT)
  Receive Date: 20140220
  Receipt Date: 20140418
  Transmission Date: 20141212
  Serious: Yes (Hospitalization)
  Sender: FDA-Public Use
  Company Number: IT-BRISTOL-MYERS SQUIBB COMPANY-20224200

PATIENT
  Age: 75 Year
  Sex: Male

DRUGS (6)
  1. ERBITUX SOLN FOR INF [Suspect]
     Route: 042
     Dates: start: 20140114
  2. CARBOPLATIN INJECTION [Suspect]
     Indication: NASAL SINUS CANCER
     Route: 042
     Dates: start: 20140114
  3. GRANISETRON [Concomitant]
  4. ACETAMINOPHEN [Concomitant]
  5. MOVICOL [Concomitant]
  6. PLASIL [Concomitant]

REACTIONS (1)
  - Anaemia [Recovering/Resolving]
